FAERS Safety Report 7078860-8 (Version None)
Quarter: 2010Q4

REPORT INFORMATION
  Report Type: 
  Country: None (occurrence: None)
  Receive Date: 20101102
  Receipt Date: 20101027
  Transmission Date: 20110411
  Serious: Yes (Death, Life-Threatening, Hospitalization, Disabling)
  Sender: FDA-Public Use
  Company Number: JP-PFIZER INC-2008076220

PATIENT
  Age: 60 Year
  Sex: Male
  Weight: 51 kg

DRUGS (7)
  1. SUNITINIB MALATE [Suspect]
     Indication: GASTROINTESTINAL STROMAL TUMOUR
     Dosage: 50 MG, 1X/DAY
     Route: 048
     Dates: start: 20080806, end: 20080827
  2. FIRSTCIN [Concomitant]
     Route: 042
     Dates: start: 20080812, end: 20080816
  3. PENTCILLIN [Concomitant]
     Route: 042
     Dates: start: 20080817, end: 20080821
  4. FENTANYL CITRATE [Concomitant]
     Dates: start: 20080818
  5. FLUMARIN [Concomitant]
     Route: 042
     Dates: start: 20080822, end: 20080826
  6. ADONA [Concomitant]
     Dosage: 100 MG, 1X/DAY
     Route: 042
     Dates: start: 20080819, end: 20080822
  7. TRANEXAMIC ACID [Concomitant]
     Dosage: 1000 MG, 1X/DAY
     Route: 042
     Dates: start: 20080819, end: 20080822

REACTIONS (9)
  - ANAEMIA [None]
  - BLOOD BILIRUBIN INCREASED [None]
  - BLOOD CREATININE INCREASED [None]
  - BLOOD UREA INCREASED [None]
  - CACHEXIA [None]
  - DISEASE PROGRESSION [None]
  - GASTROINTESTINAL STROMAL TUMOUR [None]
  - HYPOALBUMINAEMIA [None]
  - PLATELET COUNT DECREASED [None]
